FAERS Safety Report 11265105 (Version 1)
Quarter: 2015Q3

REPORT INFORMATION
  Report Type: Spontaneous
  Country: US (occurrence: None)
  Receive Date: 20150710
  Receipt Date: 20150710
  Transmission Date: 20151125
  Serious: No
  Sender: FDA-Public Use
  Company Number: None

PATIENT
  Age: 71 Year
  Sex: Female
  Weight: 80.29 kg

DRUGS (4)
  1. VITAMIN D3 [Concomitant]
     Active Substance: CHOLECALCIFEROL
  2. ALENDRONATE 70 MG [Suspect]
     Active Substance: ALENDRONATE SODIUM
     Indication: OSTEOPOROSIS
     Dosage: 1, WEEKLY, TAKEN BY MOUTH
     Route: 048
     Dates: start: 20140822, end: 20141003
  3. SYNTHROID [Concomitant]
     Active Substance: LEVOTHYROXINE SODIUM
  4. CALCIUM SUPPLEMENTS [Concomitant]
     Active Substance: CALCIUM

REACTIONS (3)
  - Eye pain [None]
  - Retinal scar [None]
  - Ocular hyperaemia [None]

NARRATIVE: CASE EVENT DATE: 20141003
